FAERS Safety Report 18876129 (Version 1)
Quarter: 2021Q1

REPORT INFORMATION
  Report Type: Spontaneous
  Country: DE (occurrence: DE)
  Receive Date: 20210210
  Receipt Date: 20210210
  Transmission Date: 20210420
  Serious: Yes (Congenital Anomaly, Other)
  Sender: FDA-Public Use
  Company Number: DE-ALLERGAN-2105683US

PATIENT
  Sex: Male
  Weight: 2.96 kg

DRUGS (8)
  1. GAVISCON ADVANCE [Suspect]
     Active Substance: POTASSIUM BICARBONATE\SODIUM ALGINATE
     Indication: EXPOSURE DURING PREGNANCY
     Dosage: UNK
     Route: 064
  2. NASENSPRAY [Concomitant]
     Route: 064
  3. MCP [Concomitant]
     Active Substance: METOCLOPRAMIDE HYDROCHLORIDE
     Dosage: 10 MG
     Route: 064
  4. PARACETAMOL [Concomitant]
     Active Substance: ACETAMINOPHEN
     Dosage: 1000 MG IF REQUIRED
     Route: 064
  5. VITAMIN B?KOMPLEX [Concomitant]
     Dosage: RECOMMENDED BY NON?MEDICAL PRACTIIONER (^HEILPRAKTIKER^)
     Route: 064
     Dates: start: 20190611, end: 20200309
  6. CITALOPRAM HYDROBROMIDE ? BP [Suspect]
     Active Substance: CITALOPRAM HYDROBROMIDE
     Indication: EXPOSURE DURING PREGNANCY
     Dosage: 30 MG, QD
     Route: 064
     Dates: start: 20190611, end: 20200309
  7. L?THYROXIN [Concomitant]
     Active Substance: LEVOTHYROXINE SODIUM
     Dosage: 50 ?G, QD
     Route: 064
     Dates: start: 20190611, end: 20200309
  8. PRESINOL [Concomitant]
     Active Substance: METHYLDOPA
     Dosage: 500 [MG/D (BIS 250) ]
     Route: 064

REACTIONS (5)
  - Lenticulostriatal vasculopathy [Unknown]
  - Eyelid ptosis congenital [Unknown]
  - Pregnancy [Unknown]
  - Congenital nasal septum deviation [Unknown]
  - Respiratory disorder neonatal [Recovered/Resolved]

NARRATIVE: CASE EVENT DATE: 20200309
